FAERS Safety Report 4864216-2 (Version None)
Quarter: 2005Q4

REPORT INFORMATION
  Report Type: 
  Country: None (occurrence: None)
  Receive Date: 20051221
  Receipt Date: 20051221
  Transmission Date: 20060501
  Serious: Yes (Hospitalization)
  Sender: FDA-Public Use
  Company Number: None

PATIENT
  Sex: Male
  Weight: 78 kg

DRUGS (9)
  1. CAPECITABINE [Suspect]
     Dosage: 2100 MG PO BID / CAPS
     Route: 048
     Dates: start: 20051212
  2. IRINOTECAN [Suspect]
     Dosage: 530 MG IV DAY 1 (120')
  3. LOVENOX [Concomitant]
  4. OXYCODONE [Concomitant]
  5. COLACE [Concomitant]
  6. COUMADIN [Concomitant]
  7. OXYCONTIN [Concomitant]
  8. DECADRON [Concomitant]
  9. COMPAZINE [Concomitant]

REACTIONS (1)
  - FEBRILE NEUTROPENIA [None]
